FAERS Safety Report 14943981 (Version 2)
Quarter: 2018Q3

REPORT INFORMATION
  Report Type: Spontaneous
  Country: DE (occurrence: DE)
  Receive Date: 20180528
  Receipt Date: 20180716
  Transmission Date: 20181010
  Serious: Yes (Hospitalization, Other)
  Sender: FDA-Public Use
  Company Number: DE-GLAXOSMITHKLINE-DE2018GSK069798

PATIENT
  Age: 65 Year
  Sex: Male
  Weight: 78 kg

DRUGS (4)
  1. MAGNESIUM [Concomitant]
     Active Substance: MAGNESIUM
     Indication: PRODUCT USED FOR UNKNOWN INDICATION
     Dosage: UNK
  2. SCOPODERM TTS [Suspect]
     Active Substance: SCOPOLAMINE
     Indication: MOTION SICKNESS
     Dosage: UNK UNK, BID
     Dates: start: 20180409, end: 20180415
  3. L?THYROXIN [Concomitant]
     Active Substance: LEVOTHYROXINE SODIUM
     Indication: ILL-DEFINED DISORDER
     Dosage: 1 DF, QD
  4. GALACORDIN [Concomitant]
     Indication: PARAESTHESIA
     Dosage: 1 DF, QD

REACTIONS (8)
  - Nystagmus [Unknown]
  - Dizziness [Recovered/Resolved with Sequelae]
  - Renal failure [Unknown]
  - Vomiting [Recovering/Resolving]
  - Headache [Recovering/Resolving]
  - Feeling abnormal [Not Recovered/Not Resolved]
  - Vertigo [Recovering/Resolving]
  - Vestibular neuronitis [Recovering/Resolving]

NARRATIVE: CASE EVENT DATE: 201804
